FAERS Safety Report 6304866-X (Version None)
Quarter: 2009Q3

REPORT INFORMATION
  Report Type: 
  Country: None (occurrence: None)
  Receive Date: 20090811
  Receipt Date: 20090730
  Transmission Date: 20100115
  Serious: Yes (Life-Threatening, Hospitalization)
  Sender: FDA-Public Use
  Company Number: FR-GENENTECH-288276

PATIENT
  Sex: Male

DRUGS (7)
  1. RITUXIMAB [Suspect]
     Indication: DIFFUSE LARGE B-CELL LYMPHOMA
     Dosage: 375 MG/M2, UNK
     Route: 042
     Dates: start: 20090617, end: 20090729
  2. CYCLOPHOSPHAMIDE [Suspect]
     Indication: DIFFUSE LARGE B-CELL LYMPHOMA
     Dosage: 1200 MG/M2, UNK
     Route: 042
     Dates: start: 20090618, end: 20090729
  3. DOXORUBICIN HCL [Suspect]
     Indication: DIFFUSE LARGE B-CELL LYMPHOMA
     Dosage: 75 MG/M2, UNK
     Route: 042
     Dates: start: 20090618, end: 20090729
  4. VINDESINE [Suspect]
     Indication: DIFFUSE LARGE B-CELL LYMPHOMA
     Dosage: 2 MG/M2, UNK
     Route: 042
     Dates: start: 20090618, end: 20090729
  5. BLEOMYCIN SULFATE [Suspect]
     Indication: DIFFUSE LARGE B-CELL LYMPHOMA
     Dosage: 10 MG, UNK
     Route: 042
     Dates: start: 20090618, end: 20090729
  6. SOLUPRED [Suspect]
     Indication: DIFFUSE LARGE B-CELL LYMPHOMA
     Dosage: 60 MG, UNK
     Route: 042
     Dates: start: 20090617, end: 20090729
  7. METHOTREXATE [Suspect]
     Indication: DIFFUSE LARGE B-CELL LYMPHOMA
     Dosage: 15 MG, UNK
     Route: 037
     Dates: start: 20090619, end: 20090729

REACTIONS (1)
  - FEBRILE BONE MARROW APLASIA [None]
